FAERS Safety Report 5707397-0 (Version None)
Quarter: 2008Q2

REPORT INFORMATION
  Report Type: 
  Country: None (occurrence: None)
  Receive Date: 20080416
  Receipt Date: 20080321
  Transmission Date: 20081010
  Serious: No
  Sender: FDA-Public Use
  Company Number: US-BOEHRINGER INGELHEIM GMBH, GERMANY-2008-BP-04460BP

PATIENT
  Sex: Female

DRUGS (7)
  1. SPIRIVA [Suspect]
     Indication: CHRONIC OBSTRUCTIVE PULMONARY DISEASE
     Route: 055
     Dates: start: 20080101
  2. ADVAIR HFA [Concomitant]
  3. MICOSTATIN [Concomitant]
     Indication: CANDIDIASIS
  4. ALBUTEROL [Concomitant]
  5. DUONEB [Concomitant]
  6. SINGULAIR [Concomitant]
  7. OXYGEN [Concomitant]

REACTIONS (3)
  - PHARYNGOLARYNGEAL PAIN [None]
  - SENSATION OF FOREIGN BODY [None]
  - TONGUE DISORDER [None]
